FAERS Safety Report 6685988-0 (Version None)
Quarter: 2010Q2

REPORT INFORMATION
  Report Type: 
  Country: None (occurrence: None)
  Receive Date: 20100419
  Receipt Date: 20100408
  Transmission Date: 20101027
  Serious: Yes (Hospitalization)
  Sender: FDA-Public Use
  Company Number: PHHY2010JP22369

PATIENT
  Age: 49 Year
  Sex: Male

DRUGS (3)
  1. ZOMETA [Suspect]
     Indication: METASTASES TO BONE
     Dosage: UNK
     Route: 042
     Dates: start: 20080903, end: 20100301
  2. DORIPENEM MONOHYDRATE [Concomitant]
     Dosage: 6 DF; UNK
     Route: 042
     Dates: start: 20100324, end: 20100329
  3. ZOSYN [Concomitant]
     Dosage: 1 DF; UNK
     Route: 042
     Dates: start: 20100403

REACTIONS (5)
  - CATHETER PLACEMENT [None]
  - INCISIONAL DRAINAGE [None]
  - OSTEONECROSIS [None]
  - PAIN IN JAW [None]
  - PURULENT DISCHARGE [None]
